FAERS Safety Report 19410052 (Version 1)
Quarter: 2021Q2

REPORT INFORMATION
  Report Type: Spontaneous
  Country: ES (occurrence: ES)
  Receive Date: 20210614
  Receipt Date: 20210614
  Transmission Date: 20210717
  Serious: Yes (Life-Threatening, Hospitalization)
  Sender: FDA-Public Use
  Company Number: ES-JNJFOC-20210623233

PATIENT
  Age: 52 Year
  Sex: Female

DRUGS (4)
  1. STELARA [Suspect]
     Active Substance: USTEKINUMAB
     Indication: PSORIASIS
     Dosage: 1 PREFILLED SYRINGE OF 0,5ML
     Route: 058
     Dates: start: 20180117, end: 20210526
  2. PARACETAMOL [Concomitant]
     Active Substance: ACETAMINOPHEN
     Dosage: 1 G/12 HORAS
     Route: 048
     Dates: start: 20191028
  3. STELARA [Suspect]
     Active Substance: USTEKINUMAB
  4. CONDROITIN SULFATO KERN PHARMA [Concomitant]
     Indication: ARTHRALGIA
     Dosage: 800 MG /24 HORAS
     Route: 048
     Dates: start: 20210310

REACTIONS (1)
  - Acute myeloid leukaemia [Not Recovered/Not Resolved]

NARRATIVE: CASE EVENT DATE: 20210526
